FAERS Safety Report 5494320-X (Version None)
Quarter: 2007Q4

REPORT INFORMATION
  Report Type: 
  Country: None (occurrence: None)
  Receive Date: 20071015
  Receipt Date: 20070803
  Transmission Date: 20080405
  Serious: No
  Sender: FDA-Public Use
  Company Number: 2007SP002743

PATIENT
  Age: 75 Year
  Sex: Female
  Weight: 72.1219 kg

DRUGS (5)
  1. LUNESTA [Suspect]
     Indication: INSOMNIA
     Dosage: 3 MG;PRN;ORAL, 6 MG;1X;ORAL, 2 MG;PRN;ORAL
     Route: 048
     Dates: start: 20070701, end: 20070801
  2. LUNESTA [Suspect]
     Indication: INSOMNIA
     Dosage: 3 MG;PRN;ORAL, 6 MG;1X;ORAL, 2 MG;PRN;ORAL
     Route: 048
     Dates: start: 20070801, end: 20070801
  3. LUNESTA [Suspect]
     Indication: INSOMNIA
     Dosage: 3 MG;PRN;ORAL, 6 MG;1X;ORAL, 2 MG;PRN;ORAL
     Route: 048
     Dates: start: 20070802, end: 20070802
  4. NAVANE [Concomitant]
  5. RESTORIL [Concomitant]

REACTIONS (2)
  - DRUG INEFFECTIVE [None]
  - INITIAL INSOMNIA [None]
